FAERS Safety Report 26174720 (Version 2)
Quarter: 2025Q4

REPORT INFORMATION
  Report Type: Spontaneous
  Country: IN (occurrence: IN)
  Receive Date: 20251218
  Receipt Date: 20251229
  Transmission Date: 20260118
  Serious: Yes (Hospitalization, Disabling)
  Sender: MACLEODS
  Company Number: IN-MLMSERVICE-20251202-PI724232-00033-1

PATIENT

DRUGS (2)
  1. TICAGRELOR [Suspect]
     Active Substance: TICAGRELOR
     Indication: Antiplatelet therapy
     Route: 065
  2. ASPIRIN [Suspect]
     Active Substance: ASPIRIN
     Indication: Antiplatelet therapy
     Route: 065

REACTIONS (2)
  - Spinal subdural haematoma [Recovered/Resolved]
  - Paraparesis [Recovered/Resolved]
